FAERS Safety Report 20268413 (Version 1)
Quarter: 2021Q4

REPORT INFORMATION
  Report Type: Spontaneous
  Country: US (occurrence: US)
  Receive Date: 20211231
  Receipt Date: 20211231
  Transmission Date: 20220303
  Serious: No
  Sender: FDA-Public Use
  Company Number: US-COOPERSURGICAL, INC.-US-2021CPS000457

PATIENT

DRUGS (4)
  1. PARAGARD T 380A [Suspect]
     Active Substance: COPPER
     Indication: Contraception
     Dosage: UNK
     Route: 015
     Dates: start: 20200415, end: 20210203
  2. FLEXERIL                           /00428402/ [Concomitant]
     Indication: Product used for unknown indication
     Dosage: UNK
     Route: 065
  3. VALACYCLOVIR                       /01269701/ [Concomitant]
     Indication: Herpes simplex
     Dosage: UNK
     Route: 065
  4. PROTONIX                           /00661201/ [Concomitant]
     Indication: Product used for unknown indication
     Dosage: UNK
     Route: 065

REACTIONS (4)
  - Smear cervix abnormal [Unknown]
  - Coital bleeding [Unknown]
  - Intermenstrual bleeding [Recovered/Resolved]
  - Device expulsion [Recovered/Resolved]

NARRATIVE: CASE EVENT DATE: 20200101
